FAERS Safety Report 9017646 (Version 1)
Quarter: 2013Q1

REPORT INFORMATION
  Report Type: Spontaneous
  Country: DE (occurrence: DE)
  Receive Date: 20130117
  Receipt Date: 20130117
  Transmission Date: 20140127
  Serious: Yes (Other)
  Sender: FDA-Public Use
  Company Number: GXKR2013DE000550

PATIENT
  Age: 61 Year
  Sex: Male
  Weight: 64 kg

DRUGS (2)
  1. LEVETIRACETAM [Suspect]
     Indication: EPILEPSY
     Dosage: 2 G, QD
     Route: 048
     Dates: start: 200910
  2. KEPPRA [Suspect]
     Indication: EPILEPSY
     Dosage: UNK UKN, UNK

REACTIONS (1)
  - Keratitis [Recovered/Resolved]
